FAERS Safety Report 7771429-9 (Version None)
Quarter: 2011Q3

REPORT INFORMATION
  Report Type: 
  Country: None (occurrence: None)
  Receive Date: 20110922
  Receipt Date: 20110526
  Transmission Date: 20111222
  Serious: No
  Sender: FDA-Public Use
  Company Number: US-ASTRAZENECA-2011SE32826

PATIENT
  Age: 53 Year
  Sex: Female

DRUGS (11)
  1. VITAMIN D [Concomitant]
  2. ACETAMINOPHEN [Concomitant]
  3. ASCORBIC ACID [Concomitant]
  4. CYMBALTA [Concomitant]
  5. MULTI-VITAMIN [Concomitant]
  6. VITAMIN B-12 [Concomitant]
  7. SEROQUEL XR [Suspect]
     Route: 048
     Dates: start: 20110101, end: 20110519
  8. MAGNESIUM OXIDE [Concomitant]
  9. CALCIUM CARBONATE [Concomitant]
  10. IBUPROFEN [Concomitant]
  11. ZINC 220 [Concomitant]

REACTIONS (2)
  - OEDEMA [None]
  - SWELLING [None]
